FAERS Safety Report 20617223 (Version 2)
Quarter: 2022Q2

REPORT INFORMATION
  Report Type: Spontaneous
  Country: JP (occurrence: JP)
  Receive Date: 20220321
  Receipt Date: 20220415
  Transmission Date: 20220721
  Serious: Yes (Other)
  Sender: FDA-Public Use
  Company Number: JP-PFIZER INC-202200405522

PATIENT
  Sex: Male

DRUGS (2)
  1. LORAZEPAM [Suspect]
     Active Substance: LORAZEPAM
     Dosage: UNK [DIVIDING THE HALF TABLET INTO 1/2 AND 1/4, REDUCING THE DOSE LITTLE BY LITTLE.]
     Route: 048
  2. LORAZEPAM [Suspect]
     Active Substance: LORAZEPAM
     Dosage: 1 DF (1 TABLET)
     Route: 048

REACTIONS (8)
  - Drug dependence [Unknown]
  - Asthenia [Unknown]
  - Fatigue [Unknown]
  - Somnolence [Unknown]
  - Agitation [Unknown]
  - Movement disorder [Unknown]
  - Ataxia [Unknown]
  - Dyspepsia [Unknown]
